FAERS Safety Report 8355758-6 (Version None)
Quarter: 2012Q2

REPORT INFORMATION
  Report Type: 
  Country: None (occurrence: None)
  Receive Date: 20120514
  Receipt Date: 20120508
  Transmission Date: 20120825
  Serious: No
  Sender: FDA-Public Use
  Company Number: US-PFIZER INC-2012004612

PATIENT
  Sex: Female
  Weight: 33.56 kg

DRUGS (6)
  1. GENOTROPIN [Suspect]
     Indication: BODY HEIGHT BELOW NORMAL
  2. LAMICTAL [Concomitant]
     Indication: CONVULSION
     Dosage: 100 MG, 2X/DAY
  3. GENOTROPIN [Suspect]
     Indication: GROWTH RETARDATION
     Dosage: 1.4 MG, 1X/DAY
     Route: 058
     Dates: start: 20090401, end: 20111223
  4. CONCERTA [Concomitant]
     Indication: ATTENTION DEFICIT/HYPERACTIVITY DISORDER
     Dosage: 36 MG, 1X/DAY
  5. MELATONIN [Concomitant]
     Indication: INSOMNIA
     Dosage: 1.5 MG, 1X/DAY, EVERY NIGHT
  6. CALCIUM WITH VITAMIN D [Concomitant]
     Dosage: 300 MG, 2X/DAY

REACTIONS (2)
  - MOOD ALTERED [None]
  - ABNORMAL BEHAVIOUR [None]
